FAERS Safety Report 4349990-6 (Version None)
Quarter: 2004Q2

REPORT INFORMATION
  Report Type: 
  Country: None (occurrence: None)
  Receive Date: 20040428
  Receipt Date: 20040428
  Transmission Date: 20050107
  Serious: Yes (Hospitalization)
  Sender: FDA-Public Use
  Company Number: None

PATIENT
  Age: 69 Year
  Sex: Female
  Weight: 77 kg

DRUGS (17)
  1. GEMCITABINE 1000 MG/M2 [Suspect]
     Indication: NON-SMALL CELL LUNG CANCER
     Dates: start: 20040409, end: 20040414
  2. CARBOPLATIN [Suspect]
     Indication: NON-SMALL CELL LUNG CANCER
     Dates: start: 20040409, end: 20040416
  3. PREMARIN [Concomitant]
  4. LOPRESSOR [Concomitant]
  5. BEXTRA [Concomitant]
  6. ACYPHEX [Concomitant]
  7. XANAX [Concomitant]
  8. HYDROCHLOROTHIAZIDE [Concomitant]
  9. IMDUR [Concomitant]
  10. SINGULAIR [Concomitant]
  11. VIT E [Concomitant]
  12. ATROPINE BROMIDE [Concomitant]
  13. ADVAIR DISKUS 100/50 [Concomitant]
  14. ALBUTEROL SULFATE [Concomitant]
  15. COMBIVENT PATCH [Concomitant]
  16. NEXIUM [Concomitant]
  17. PLAVIX [Concomitant]

REACTIONS (2)
  - NEUTROPENIA [None]
  - THROMBOCYTOPENIA [None]
